FAERS Safety Report 5046599-6 (Version None)
Quarter: 2006Q2

REPORT INFORMATION
  Report Type: 
  Country: None (occurrence: None)
  Receive Date: 20060601
  Receipt Date: 20060213
  Transmission Date: 20061013
  Serious: No
  Sender: FDA-Public Use
  Company Number: 2006PV008628

PATIENT
  Age: 76 Year
  Sex: Male
  Weight: 117.028 kg

DRUGS (4)
  1. BYETTA [Suspect]
     Indication: DIABETES MELLITUS NON-INSULIN-DEPENDENT
     Dosage: 5 MCG QD SC ; 5 MCG BID SC
     Route: 058
     Dates: start: 20060107, end: 20060130
  2. BYETTA [Suspect]
     Indication: DIABETES MELLITUS NON-INSULIN-DEPENDENT
     Dosage: 5 MCG QD SC ; 5 MCG BID SC
     Route: 058
     Dates: start: 20060131, end: 20060206
  3. REGULAR INSULIN [Concomitant]
  4. AVANDAMET [Concomitant]

REACTIONS (5)
  - BLOOD GLUCOSE INCREASED [None]
  - DIZZINESS [None]
  - NAUSEA [None]
  - RETCHING [None]
  - VOMITING [None]
